FAERS Safety Report 15959897 (Version 1)
Quarter: 2019Q1

REPORT INFORMATION
  Report Type: Spontaneous
  Country: US (occurrence: US)
  Receive Date: 20190214
  Receipt Date: 20190214
  Transmission Date: 20190417
  Serious: No
  Sender: FDA-Public Use
  Company Number: US-ROCHE-2083811

PATIENT
  Sex: Female

DRUGS (4)
  1. ERIVEDGE [Suspect]
     Active Substance: VISMODEGIB
     Indication: BASAL CELL CARCINOMA
     Dosage: ONGOING
     Route: 048
     Dates: start: 20170929
  2. VITAMIN A [Concomitant]
     Active Substance: VITAMIN A
  3. GRAPEFRUIT SEED [Concomitant]
  4. CUMIN SEED OIL [Concomitant]

REACTIONS (2)
  - Alopecia [Unknown]
  - Nausea [Unknown]
